FAERS Safety Report 5496274-9 (Version None)
Quarter: 2007Q4

REPORT INFORMATION
  Report Type: 
  Country: None (occurrence: None)
  Receive Date: 20071025
  Receipt Date: 20070320
  Transmission Date: 20080405
  Serious: No
  Sender: FDA-Public Use
  Company Number: A0643899A

PATIENT
  Age: 65 Year
  Sex: Female

DRUGS (10)
  1. ADVAIR DISKUS 100/50 [Suspect]
     Indication: ASTHMA
     Dosage: 1PUFF TWICE PER DAY
     Route: 055
  2. SPIRIVA [Concomitant]
  3. ALBUTEROL [Concomitant]
  4. MUCINEX [Concomitant]
  5. TUSSIN [Concomitant]
  6. LORAZEPAM [Concomitant]
  7. VITAMIN CAP [Concomitant]
  8. CALCIUM/VITAMIN D [Concomitant]
  9. UNKNOWN MEDICATION [Concomitant]
  10. UNKNOWN MEDICATION [Concomitant]

REACTIONS (4)
  - CHEST PAIN [None]
  - COUGH [None]
  - EYE DISORDER [None]
  - TREMOR [None]
